FAERS Safety Report 24971739 (Version 1)
Quarter: 2025Q1

REPORT INFORMATION
  Report Type: Spontaneous
  Country: US (occurrence: US)
  Receive Date: 20250214
  Receipt Date: 20250214
  Transmission Date: 20250409
  Serious: Yes (Other)
  Sender: PFIZER
  Company Number: US-PFIZER INC-PV202500016686

PATIENT
  Age: 65 Year
  Sex: Male
  Weight: 118.14 kg

DRUGS (6)
  1. IBRANCE [Suspect]
     Active Substance: PALBOCICLIB
     Indication: Breast cancer
     Dates: start: 202409
  2. IBRANCE [Suspect]
     Active Substance: PALBOCICLIB
     Indication: Breast cancer stage IV
     Dates: start: 202410
  3. IBRANCE [Suspect]
     Active Substance: PALBOCICLIB
     Indication: Metastases to bone
     Dates: start: 20241119
  4. IBRANCE [Suspect]
     Active Substance: PALBOCICLIB
     Indication: Breast cancer stage II
  5. FASLODEX [Suspect]
     Active Substance: FULVESTRANT
     Dates: start: 202409
  6. XGEVA [Suspect]
     Active Substance: DENOSUMAB
     Dates: start: 202409

REACTIONS (2)
  - Mastectomy [Unknown]
  - Neoplasm progression [Unknown]

NARRATIVE: CASE EVENT DATE: 20240101
